FAERS Safety Report 21981460 (Version 1)
Quarter: 2023Q1

REPORT INFORMATION
  Report Type: Spontaneous
  Country: US (occurrence: US)
  Receive Date: 20230211
  Receipt Date: 20230211
  Transmission Date: 20230418
  Serious: Yes (Hospitalization, Other)
  Sender: FDA-Public Use
  Company Number: US-AMGEN-USASP2023022401

PATIENT
  Age: 63 Year
  Sex: Female

DRUGS (1)
  1. BLINCYTO [Suspect]
     Active Substance: BLINATUMOMAB
     Indication: Acute lymphocytic leukaemia
     Dosage: UNK
     Route: 065
     Dates: start: 202207, end: 202207

REACTIONS (2)
  - Neurotoxicity [Recovered/Resolved]
  - Central nervous system leukaemia [Recovered/Resolved]

NARRATIVE: CASE EVENT DATE: 20220701
